FAERS Safety Report 7659249-7 (Version None)
Quarter: 2011Q3

REPORT INFORMATION
  Report Type: 
  Country: None (occurrence: None)
  Receive Date: 20110805
  Receipt Date: 20110725
  Transmission Date: 20111222
  Serious: Yes (Other)
  Sender: FDA-Public Use
  Company Number: US-ROCHE-772963

PATIENT
  Sex: Male
  Weight: 63.5 kg

DRUGS (1)
  1. ACCUTANE [Suspect]
     Route: 065
     Dates: start: 19961201, end: 19970601

REACTIONS (5)
  - INTESTINAL OBSTRUCTION [None]
  - CROHN'S DISEASE [None]
  - LIP DRY [None]
  - INFLAMMATORY BOWEL DISEASE [None]
  - DEPRESSION [None]
